FAERS Safety Report 8209472-8 (Version None)
Quarter: 2012Q1

REPORT INFORMATION
  Report Type: 
  Country: None (occurrence: None)
  Receive Date: 20120314
  Receipt Date: 20120228
  Transmission Date: 20120608
  Serious: Yes (Other)
  Sender: FDA-Public Use
  Company Number: CHPA2012US004167

PATIENT
  Age: 68 Year
  Sex: Female

DRUGS (1)
  1. MAALOX ANTACID/ANTIGAS MAX LIQ [Suspect]
     Indication: HIATUS HERNIA
     Dosage: UNK, UNK
     Route: 048

REACTIONS (7)
  - OVERDOSE [None]
  - ANEURYSM [None]
  - STAPHYLOCOCCAL INFECTION [None]
  - INFECTION [None]
  - WRONG TECHNIQUE IN DRUG USAGE PROCESS [None]
  - OFF LABEL USE [None]
  - URINARY TRACT INFECTION [None]
